FAERS Safety Report 15573113 (Version 2)
Quarter: 2018Q4

REPORT INFORMATION
  Report Type: Spontaneous
  Country: US (occurrence: US)
  Receive Date: 20181031
  Receipt Date: 20181116
  Transmission Date: 20190205
  Serious: No
  Sender: FDA-Public Use
  Company Number: US-SA-2018SA299907

PATIENT
  Sex: Female

DRUGS (1)
  1. TOUJEO [Suspect]
     Active Substance: INSULIN GLARGINE
     Indication: TYPE 2 DIABETES MELLITUS
     Dosage: 60 U, QD
     Route: 065
     Dates: start: 201807

REACTIONS (5)
  - Blister [Unknown]
  - Wrong technique in product usage process [Unknown]
  - Rash [Unknown]
  - Sinus disorder [Unknown]
  - Underdose [Unknown]
